FAERS Safety Report 21765158 (Version 2)
Quarter: 2023Q1

REPORT INFORMATION
  Report Type: Spontaneous
  Country: US (occurrence: US)
  Receive Date: 20221222
  Receipt Date: 20230110
  Transmission Date: 20230418
  Serious: Yes (Hospitalization)
  Sender: FDA-Public Use
  Company Number: US-TEVA-2022-US-2837347

PATIENT
  Age: 80 Year
  Sex: Female

DRUGS (1)
  1. CALCITRIOL [Suspect]
     Active Substance: CALCITRIOL
     Indication: Blood parathyroid hormone increased
     Route: 065

REACTIONS (3)
  - Hyperparathyroidism primary [Unknown]
  - Parathyroid tumour benign [Unknown]
  - Unmasking of previously unidentified disease [Unknown]
